FAERS Safety Report 7098284-7 (Version None)
Quarter: 2010Q4

REPORT INFORMATION
  Report Type: 
  Country: None (occurrence: None)
  Receive Date: 20101112
  Receipt Date: 20100909
  Transmission Date: 20110411
  Serious: No
  Sender: FDA-Public Use
  Company Number: A0877722A

PATIENT
  Age: 31 Year
  Sex: Female
  Weight: 80.9 kg

DRUGS (3)
  1. TREXIMET [Suspect]
     Indication: MIGRAINE
     Route: 048
  2. NUVARING [Concomitant]
  3. MULTI-VITAMIN [Concomitant]

REACTIONS (6)
  - BURNING SENSATION [None]
  - FEELING HOT [None]
  - MUSCLE TIGHTNESS [None]
  - MUSCULOSKELETAL STIFFNESS [None]
  - PARAESTHESIA [None]
  - SKIN BURNING SENSATION [None]
